FAERS Safety Report 23402695 (Version 1)
Quarter: 2024Q1

REPORT INFORMATION
  Report Type: Spontaneous
  Country: US (occurrence: US)
  Receive Date: 20240115
  Receipt Date: 20240115
  Transmission Date: 20240409
  Serious: No
  Sender: FDA-Public Use
  Company Number: US-OPELLA-2024OHG000114

PATIENT
  Age: 43 Year
  Sex: Male
  Weight: 68 kg

DRUGS (25)
  1. DULCOLAX STIMULANT LAXATIVE [Suspect]
     Active Substance: BISACODYL
     Indication: Constipation
     Dates: start: 2023
  2. ORENITRAM [Concomitant]
     Active Substance: TREPROSTINIL
     Indication: Pulmonary arterial hypertension
     Route: 048
  3. ORENITRAM [Concomitant]
     Active Substance: TREPROSTINIL
     Route: 048
  4. ORENITRAM [Concomitant]
     Active Substance: TREPROSTINIL
     Route: 048
     Dates: start: 2023, end: 20231206
  5. ORENITRAM [Concomitant]
     Active Substance: TREPROSTINIL
     Route: 048
     Dates: start: 20231206, end: 2023
  6. ORENITRAM [Concomitant]
     Active Substance: TREPROSTINIL
     Route: 048
     Dates: start: 202312
  7. ORENITRAM [Concomitant]
     Active Substance: TREPROSTINIL
     Route: 048
     Dates: start: 20231221
  8. ORENITRAM [Concomitant]
     Active Substance: TREPROSTINIL
     Route: 048
     Dates: start: 20231121
  9. ORENITRAM [Concomitant]
     Active Substance: TREPROSTINIL
     Route: 048
  10. VELETRI [Concomitant]
     Active Substance: EPOPROSTENOL
     Indication: Pulmonary arterial hypertension
     Route: 048
     Dates: end: 20231206
  11. VELETRI [Concomitant]
     Active Substance: EPOPROSTENOL
     Dates: start: 20231206, end: 20231212
  12. DULOXETINE HYDROCHLORIDE [Concomitant]
     Active Substance: DULOXETINE HYDROCHLORIDE
  13. PREDNISONE [Concomitant]
     Active Substance: PREDNISONE
  14. IMURAN [Concomitant]
     Active Substance: AZATHIOPRINE
  15. SODIUM CHLORIDE [Concomitant]
     Active Substance: SODIUM CHLORIDE
  16. PANTOPRAZOLE SODIUM [Concomitant]
     Active Substance: PANTOPRAZOLE SODIUM
  17. HEPARIN [Concomitant]
     Active Substance: HEPARIN SODIUM
  18. IRON [Concomitant]
     Active Substance: IRON
  19. XARELTO [Concomitant]
     Active Substance: RIVAROXABAN
  20. OXYGEN [Concomitant]
     Active Substance: OXYGEN
  21. OXYCODONE HYDROCHLORIDE [Concomitant]
     Active Substance: OXYCODONE HYDROCHLORIDE
  22. ONDANSETRON HYDROCHLORIDE [Concomitant]
     Active Substance: ONDANSETRON HYDROCHLORIDE
  23. SILDENAFIL CITRATE [Concomitant]
     Active Substance: SILDENAFIL CITRATE
  24. AMBRISENTAN [Concomitant]
     Active Substance: AMBRISENTAN
  25. ACETAMINOPHEN [Concomitant]
     Active Substance: ACETAMINOPHEN

REACTIONS (3)
  - Therapy non-responder [Unknown]
  - Abdominal pain [Unknown]
  - Nausea [Unknown]

NARRATIVE: CASE EVENT DATE: 20230101
